FAERS Safety Report 21561475 (Version 1)
Quarter: 2022Q4

REPORT INFORMATION
  Report Type: Spontaneous
  Country: US (occurrence: None)
  Receive Date: 20221106
  Receipt Date: 20221106
  Transmission Date: 20230112
  Serious: Yes (Other)
  Sender: FDA-Public Use
  Company Number: None

PATIENT
  Age: 70 Year
  Sex: Female
  Weight: 72 kg

DRUGS (4)
  1. CHOLESTYRAMINE POWDER FOR SUSPENSION [Suspect]
     Active Substance: CHOLESTYRAMINE
     Indication: Low density lipoprotein increased
     Dosage: OTHER QUANTITY : 60 PACKETS;?FREQUENCY : 3 TIMES A DAY;?
     Route: 048
     Dates: start: 20220707, end: 20220915
  2. Metformin HCL 1000 MG twice daily [Concomitant]
  3. one 5MG tablet Rosuvastatin on Monday [Concomitant]
  4. one Centrum Adult Multivitamin nightly [Concomitant]

REACTIONS (10)
  - Abdominal pain upper [None]
  - Abdominal pain upper [None]
  - Diarrhoea [None]
  - Product preparation issue [None]
  - Toothache [None]
  - Pain in jaw [None]
  - Loose tooth [None]
  - Tongue discomfort [None]
  - Insomnia [None]
  - Therapy cessation [None]

NARRATIVE: CASE EVENT DATE: 20220909
